FAERS Safety Report 7906130-1 (Version None)
Quarter: 2011Q4

REPORT INFORMATION
  Report Type: 
  Country: None (occurrence: None)
  Receive Date: 20111027
  Receipt Date: 20101004
  Transmission Date: 20120403
  Serious: Yes (Other)
  Sender: FDA-Public Use
  Company Number: 2010-3053

PATIENT
  Age: 14 Year
  Sex: Male
  Weight: 44 kg

DRUGS (3)
  1. CONCERTA [Concomitant]
  2. CLONIDINE [Concomitant]
  3. INCRELEX [Suspect]
     Indication: INSULIN-LIKE GROWTH FACTOR DECREASED
     Dosage: 108 UNITS (54 UNITS, 2 IN 1 D), UNKNOWN
     Dates: start: 20100611, end: 20100819

REACTIONS (1)
  - BENIGN INTRACRANIAL HYPERTENSION [None]
